FAERS Safety Report 18357834 (Version 1)
Quarter: 2020Q4

REPORT INFORMATION
  Report Type: Spontaneous
  Country: US (occurrence: US)
  Receive Date: 20201007
  Receipt Date: 20201007
  Transmission Date: 20210114
  Serious: Yes (Other)
  Sender: FDA-Public Use
  Company Number: US-ELI_LILLY_AND_COMPANY-US202007004466

PATIENT

DRUGS (1)
  1. TALTZ [Suspect]
     Active Substance: IXEKIZUMAB
     Indication: PRODUCT USED FOR UNKNOWN INDICATION
     Dosage: 80 MG, UNKNOWN
     Route: 065

REACTIONS (8)
  - Deafness [Unknown]
  - Laryngitis fungal [Unknown]
  - Injection site erythema [Unknown]
  - Injection site warmth [Unknown]
  - Hepatic cirrhosis [Unknown]
  - Injection site swelling [Unknown]
  - Injection site induration [Unknown]
  - Fungal oesophagitis [Unknown]
